FAERS Safety Report 9149495 (Version 1)
Quarter: 2013Q1

REPORT INFORMATION
  Report Type: Spontaneous
  Country: US (occurrence: None)
  Receive Date: 20130228
  Receipt Date: 20130228
  Transmission Date: 20140127
  Serious: Yes (Hospitalization)
  Sender: FDA-Public Use
  Company Number: None

PATIENT
  Sex: Male
  Weight: 71.8 kg

DRUGS (1)
  1. GEMCITABINE HYDROCHLORIDE [Suspect]
     Dates: end: 20130207

REACTIONS (11)
  - Mental status changes [None]
  - Confusional state [None]
  - Tachycardia [None]
  - Hypoxia [None]
  - Pneumonia [None]
  - Pleural effusion [None]
  - Sepsis [None]
  - Acute respiratory failure [None]
  - Small intestinal obstruction [None]
  - Ascites [None]
  - Hepatic steatosis [None]
